FAERS Safety Report 9613836 (Version 1)
Quarter: 2013Q4

REPORT INFORMATION
  Report Type: Spontaneous
  Country: US (occurrence: US)
  Receive Date: 20131010
  Receipt Date: 20131010
  Transmission Date: 20140711
  Serious: Yes (Other)
  Sender: FDA-Public Use
  Company Number: US-ALLERGAN-1218409US

PATIENT
  Age: 54 Year
  Sex: Female
  Weight: 81 kg

DRUGS (3)
  1. VANIQA [Suspect]
     Indication: HAIR GROWTH ABNORMAL
     Dosage: APPLIED ABOVE UPPER LIP AND BELOW LOWER LIP AREA; EVENING
     Route: 061
     Dates: start: 201201, end: 201207
  2. LEVETIRACETAM [Concomitant]
     Indication: CONVULSION
     Dosage: DF
  3. BENZAPRIL [Concomitant]
     Indication: BLOOD PRESSURE
     Dosage: DF

REACTIONS (4)
  - Scab [Recovered/Resolved]
  - Rash pruritic [Recovered/Resolved]
  - Acne [Unknown]
  - Hair growth abnormal [Unknown]
